FAERS Safety Report 7370485-X (Version None)
Quarter: 2011Q1

REPORT INFORMATION
  Report Type: 
  Country: None (occurrence: None)
  Receive Date: 20110323
  Receipt Date: 20110311
  Transmission Date: 20110831
  Serious: Yes (Other)
  Sender: FDA-Public Use
  Company Number: PHHY2011JP21019

PATIENT
  Age: 84 Year
  Sex: Male

DRUGS (1)
  1. NEORAL [Suspect]
     Indication: APLASTIC ANAEMIA
     Dosage: 300 MG, QD
     Route: 048
     Dates: start: 20110305

REACTIONS (1)
  - FEELING ABNORMAL [None]
